FAERS Safety Report 13696846 (Version 1)
Quarter: 2017Q2

REPORT INFORMATION
  Report Type: Spontaneous
  Country: LV (occurrence: LV)
  Receive Date: 20170628
  Receipt Date: 20170628
  Transmission Date: 20170830
  Serious: Yes (Other)
  Sender: FDA-Public Use
  Company Number: LV-TEVA-779547ACC

PATIENT
  Age: 30 Year
  Sex: Female

DRUGS (1)
  1. NEBIVOLOL ACTAVIS TABLETES 5 MG [Suspect]
     Active Substance: NEBIVOLOL
     Indication: ARRHYTHMIA
     Dosage: 5 MILLIGRAM DAILY;
     Route: 048
     Dates: start: 20170505, end: 20170528

REACTIONS (1)
  - Photosensitivity reaction [Recovered/Resolved]

NARRATIVE: CASE EVENT DATE: 20170513
